FAERS Safety Report 22376500 (Version 1)
Quarter: 2023Q2

REPORT INFORMATION
  Report Type: Spontaneous
  Country: CN (occurrence: CN)
  Receive Date: 20230528
  Receipt Date: 20230528
  Transmission Date: 20230721
  Serious: Yes (Life-Threatening, Other)
  Sender: FDA-Public Use
  Company Number: CN-AUROBINDO-AUR-APL-2023-038922

PATIENT
  Age: 21 Year
  Sex: Male

DRUGS (10)
  1. EVOMELA [Suspect]
     Active Substance: MELPHALAN HYDROCHLORIDE
     Indication: Lymphoma
     Dosage: UNK
     Route: 065
     Dates: start: 20230228
  2. EVOMELA [Suspect]
     Active Substance: MELPHALAN HYDROCHLORIDE
     Indication: Drug therapy
     Dosage: 50 MILLIGRAM
     Route: 041
     Dates: start: 20230305, end: 20230305
  3. EVOMELA [Suspect]
     Active Substance: MELPHALAN HYDROCHLORIDE
     Dosage: 242 MILLIGRAM, ONCE A DAY
     Route: 041
     Dates: start: 20230305, end: 20230305
  4. CARMUSTINE [Suspect]
     Active Substance: CARMUSTINE
     Indication: Lymphoma
     Dosage: 500 MILLIGRAM, ONCE A DAY
     Route: 041
     Dates: start: 20230228, end: 20230228
  5. CYTARABINE [Suspect]
     Active Substance: CYTARABINE
     Indication: Drug therapy
     Dosage: UNK
     Route: 065
     Dates: start: 20230228
  6. CYTARABINE [Suspect]
     Active Substance: CYTARABINE
     Dosage: 346 MILLIGRAM, TWO TIMES A DAY
     Route: 041
     Dates: start: 20230301, end: 20230304
  7. ETOPOSIDE [Suspect]
     Active Substance: ETOPOSIDE
     Indication: Drug therapy
     Dosage: UNK
     Route: 065
     Dates: start: 20230228
  8. ETOPOSIDE [Suspect]
     Active Substance: ETOPOSIDE
     Indication: Lymphoma
     Dosage: 200 MILLIGRAM
     Route: 041
     Dates: start: 20230301, end: 20230304
  9. ONDANSETRON HYDROCHLORIDE [Concomitant]
     Active Substance: ONDANSETRON HYDROCHLORIDE
     Indication: Lymphoma
     Dosage: 8 MILLIGRAM
     Route: 042
     Dates: start: 20230224, end: 20230305
  10. ONDANSETRON HYDROCHLORIDE [Concomitant]
     Active Substance: ONDANSETRON HYDROCHLORIDE
     Indication: Therapy cessation

REACTIONS (2)
  - Granulocyte count decreased [Recovering/Resolving]
  - Off label use [Unknown]

NARRATIVE: CASE EVENT DATE: 20230305
